FAERS Safety Report 8152140-1 (Version None)
Quarter: 2012Q1

REPORT INFORMATION
  Report Type: 
  Country: None (occurrence: None)
  Receive Date: 20120215
  Receipt Date: 20120215
  Transmission Date: 20120608
  Serious: No
  Sender: FDA-Public Use
  Company Number: None

PATIENT
  Sex: Female
  Weight: 55.07 kg

DRUGS (2)
  1. PACLITAXEL [Suspect]
     Dosage: 276 MG
  2. CARBOPLATIN [Suspect]
     Dosage: 600 MG

REACTIONS (1)
  - NEUTROPHIL COUNT DECREASED [None]
